FAERS Safety Report 8158214-3 (Version None)
Quarter: 2012Q1

REPORT INFORMATION
  Report Type: 
  Country: None (occurrence: None)
  Receive Date: 20120222
  Receipt Date: 20120215
  Transmission Date: 20120608
  Serious: Yes (Life-Threatening)
  Sender: FDA-Public Use
  Company Number: CN-BRISTOL-MYERS SQUIBB COMPANY-16408643

PATIENT
  Age: 63 Year
  Sex: Male
  Weight: 65 kg

DRUGS (3)
  1. CISPLATIN [Suspect]
     Indication: NON-SMALL CELL LUNG CANCER
     Dosage: LAST 12NOV10.AND CONTINUED
     Route: 041
     Dates: start: 20100903, end: 20101112
  2. VINORELBINE TARTRATE [Suspect]
     Indication: NON-SMALL CELL LUNG CANCER
     Dosage: LAST 19NOV10.AND CONTINUED.INFUSION.
     Route: 042
     Dates: start: 20100903, end: 20101119
  3. CETUXIMAB [Suspect]
     Indication: NON-SMALL CELL LUNG CANCER
     Dosage: LAST DOSE: 3DEC10.AND CONTINUED
     Route: 041
     Dates: start: 20100827, end: 20101203

REACTIONS (1)
  - BONE MARROW FAILURE [None]
